FAERS Safety Report 8598697-8 (Version None)
Quarter: 2012Q3

REPORT INFORMATION
  Report Type: 
  Country: None (occurrence: None)
  Receive Date: 20120816
  Receipt Date: 19880913
  Transmission Date: 20120928
  Serious: Yes (Other)
  Sender: FDA-Public Use
  Company Number: US-ROCHE-1100677

PATIENT
  Age: 49 Year
  Sex: Female

DRUGS (8)
  1. MORPHINE SULFATE [Concomitant]
     Dosage: DOSE REPEATED
  2. ACTIVASE [Suspect]
  3. HEPARIN [Concomitant]
     Dosage: 1200 UNITS PER HOUR
  4. MORPHINE SULFATE [Concomitant]
     Route: 042
  5. NITROGLYCERINE DRIP [Concomitant]
     Route: 041
  6. ACTIVASE [Suspect]
     Indication: ACUTE MYOCARDIAL INFARCTION
     Route: 042
     Dates: start: 19880115
  7. HEPARIN [Concomitant]
     Dosage: 25000 UNITS PER 500CC
  8. ACTIVASE [Suspect]

REACTIONS (1)
  - CHEST PAIN [None]
